FAERS Safety Report 8998622 (Version 2)
Quarter: 2013Q1

REPORT INFORMATION
  Report Type: Spontaneous
  Country: IT (occurrence: IT)
  Receive Date: 20130103
  Receipt Date: 20130328
  Transmission Date: 20140127
  Serious: Yes (Death)
  Sender: FDA-Public Use
  Company Number: PHHY2013IT001010

PATIENT
  Sex: Female

DRUGS (2)
  1. ZOMETA [Suspect]
     Indication: BREAST CANCER STAGE IV
     Dosage: 4 MG, MONTHLY
     Route: 042
     Dates: start: 20020901, end: 20080401
  2. AREDIA [Suspect]
     Indication: BREAST CANCER STAGE IV
     Dosage: 90 MG, MONTHLY
     Route: 042
     Dates: start: 20010101, end: 20020101

REACTIONS (1)
  - Osteonecrosis of jaw [Fatal]
